FAERS Safety Report 16678785 (Version 1)
Quarter: 2019Q3

REPORT INFORMATION
  Report Type: Spontaneous
  Country: US (occurrence: US)
  Receive Date: 20190807
  Receipt Date: 20190807
  Transmission Date: 20191004
  Serious: No
  Sender: FDA-Public Use
  Company Number: US-GALEN SPECIALTY PHARMA US LLC-AE-2018-1370

PATIENT
  Age: 34 Year
  Sex: Female
  Weight: 99.34 kg

DRUGS (5)
  1. ASPIRIN. [Concomitant]
     Active Substance: ASPIRIN
     Route: 048
     Dates: start: 20181005, end: 20181102
  2. MEDROL [Concomitant]
     Active Substance: METHYLPREDNISOLONE
     Route: 048
     Dates: start: 20181019, end: 20181023
  3. PROGESTERONE IN OIL [Concomitant]
     Active Substance: PROGESTERONE
     Route: 030
     Dates: start: 20181018, end: 20181102
  4. ESTRACE [Concomitant]
     Active Substance: ESTRADIOL
     Route: 048
     Dates: start: 20181005, end: 20181102
  5. SYNERA [Suspect]
     Active Substance: LIDOCAINE\TETRACAINE
     Indication: APPLICATION SITE ANAESTHESIA
     Route: 061
     Dates: start: 20181018, end: 20181019

REACTIONS (6)
  - Hypersensitivity [Recovered/Resolved]
  - Swelling [Recovered/Resolved]
  - Dizziness [Recovered/Resolved]
  - Administration site rash [Recovered/Resolved]
  - Erythema [Recovered/Resolved]
  - Off label use [Recovered/Resolved]

NARRATIVE: CASE EVENT DATE: 20181018
